FAERS Safety Report 20750549 (Version 1)
Quarter: 2022Q2

REPORT INFORMATION
  Report Type: Spontaneous
  Country: US (occurrence: US)
  Receive Date: 20220426
  Receipt Date: 20220426
  Transmission Date: 20220721
  Serious: Yes (Hospitalization)
  Sender: FDA-Public Use
  Company Number: US-ELI_LILLY_AND_COMPANY-US202204008213

PATIENT
  Age: 55 Year
  Sex: Female
  Weight: 57.143 kg

DRUGS (1)
  1. BEBTELOVIMAB [Suspect]
     Active Substance: BEBTELOVIMAB
     Indication: COVID-19
     Dosage: 175 MG, SINGLE
     Route: 042
     Dates: start: 20220416, end: 20220416

REACTIONS (9)
  - Blepharospasm [Unknown]
  - Hyperventilation [Unknown]
  - Malaise [Unknown]
  - Back pain [Unknown]
  - Hypoaesthesia [Unknown]
  - Tremor [Unknown]
  - Motor dysfunction [Unknown]
  - Hyperhidrosis [Unknown]
  - Headache [Unknown]

NARRATIVE: CASE EVENT DATE: 20220416
